FAERS Safety Report 13927462 (Version 5)
Quarter: 2018Q4

REPORT INFORMATION
  Report Type: Spontaneous
  Country: US (occurrence: US)
  Receive Date: 20170901
  Receipt Date: 20181227
  Transmission Date: 20190204
  Serious: Yes (Other)
  Sender: FDA-Public Use
  Company Number: US-BRISTOL-MYERS SQUIBB COMPANY-BMS-2017-078277

PATIENT
  Sex: Female
  Weight: 54.43 kg

DRUGS (1)
  1. COUMADIN [Suspect]
     Active Substance: WARFARIN SODIUM
     Indication: ATRIAL FIBRILLATION
     Dosage: 2.5 MG, QD
     Route: 048
     Dates: start: 201603

REACTIONS (16)
  - Nightmare [Not Recovered/Not Resolved]
  - Drug hypersensitivity [Unknown]
  - Prothrombin time prolonged [Unknown]
  - Dizziness [Not Recovered/Not Resolved]
  - Asthenia [Not Recovered/Not Resolved]
  - Dyspnoea [Not Recovered/Not Resolved]
  - Abnormal dreams [Unknown]
  - Decreased appetite [Not Recovered/Not Resolved]
  - Exercise lack of [Unknown]
  - Alopecia [Not Recovered/Not Resolved]
  - Cough [Unknown]
  - Monoclonal gammopathy [Unknown]
  - Polycythaemia vera [Unknown]
  - Insomnia [Not Recovered/Not Resolved]
  - Exercise tolerance decreased [Unknown]
  - Fatigue [Not Recovered/Not Resolved]

NARRATIVE: CASE EVENT DATE: 2016
